FAERS Safety Report 11556414 (Version 2)
Quarter: 2015Q3

REPORT INFORMATION
  Report Type: Spontaneous
  Country: US (occurrence: US)
  Receive Date: 20150916
  Receipt Date: 20150916
  Transmission Date: 20151125
  Serious: No
  Sender: FDA-Public Use
  Company Number: US-ELI_LILLY_AND_COMPANY-US200805004307

PATIENT
  Age: 84 Year
  Sex: Female

DRUGS (13)
  1. FORTEO [Suspect]
     Active Substance: TERIPARATIDE
     Dates: start: 20080611
  2. VITAMIN B12 [Concomitant]
     Active Substance: CYANOCOBALAMIN
     Dosage: 500 MG, DAILY (1/D)
  3. TOPROL XL [Concomitant]
     Active Substance: METOPROLOL SUCCINATE
     Dosage: 25 MG, DAILY (1/D)
  4. ASPIRIN. [Concomitant]
     Active Substance: ASPIRIN
     Dosage: 81 MG, DAILY (1/D)
  5. CENTRUM SILVER [Concomitant]
     Active Substance: VITAMINS
  6. VITAMIN D [Concomitant]
     Active Substance: CHOLECALCIFEROL
     Dosage: 1000 IU, DAILY (1/D)
  7. FORTEO [Suspect]
     Active Substance: TERIPARATIDE
     Indication: OSTEOPOROSIS
     Dosage: UNK, UNK
     Dates: start: 200711, end: 20080505
  8. SYNTHROID [Concomitant]
     Active Substance: LEVOTHYROXINE SODIUM
     Dosage: 0.1 MG, DAILY (1/D)
  9. CALCIUM [Concomitant]
     Active Substance: CALCIUM
     Dosage: 1000 MG, DAILY (1/D)
  10. LIPITOR [Concomitant]
     Active Substance: ATORVASTATIN CALCIUM
     Dosage: 20 MG, DAILY (1/D)
  11. COMBIVENT [Concomitant]
     Active Substance: ALBUTEROL SULFATE\IPRATROPIUM BROMIDE
     Dosage: UNK, 2/D
  12. OMEGA 3 FISH OIL [Concomitant]
     Active Substance: FISH OIL\OMEGA-3 FATTY ACIDS
     Dosage: 2400 MG, DAILY (1/D)
  13. AMOXICILLIN. [Concomitant]
     Active Substance: AMOXICILLIN
     Dosage: 2000 MG, AS NEEDED

REACTIONS (2)
  - Blood calcium increased [Recovered/Resolved]
  - Balance disorder [Recovering/Resolving]

NARRATIVE: CASE EVENT DATE: 20080220
